FAERS Safety Report 12758814 (Version 1)
Quarter: 2016Q3

REPORT INFORMATION
  Report Type: Spontaneous
  Country: US (occurrence: US)
  Receive Date: 20160919
  Receipt Date: 20160919
  Transmission Date: 20161109
  Serious: Yes (Hospitalization, Other)
  Sender: FDA-Public Use
  Company Number: US-CORDEN PHARMA LATINA S.P.A.-US-2016COR000207

PATIENT
  Age: 60 Year
  Sex: Male

DRUGS (3)
  1. CARBOPLATIN. [Suspect]
     Active Substance: CARBOPLATIN
     Indication: METASTATIC SQUAMOUS CELL CARCINOMA
     Dosage: 1 CYCLE
  2. TAXOTERE [Suspect]
     Active Substance: DOCETAXEL
     Indication: METASTATIC SQUAMOUS CELL CARCINOMA
     Dosage: 1 CYCLE
  3. CETUXIMAB [Suspect]
     Active Substance: CETUXIMAB
     Indication: METASTATIC SQUAMOUS CELL CARCINOMA
     Dosage: 1 CYCLE

REACTIONS (3)
  - Pancytopenia [Unknown]
  - Pyrexia [Unknown]
  - Bone pain [Recovering/Resolving]
